FAERS Safety Report 6916422-0 (Version None)
Quarter: 2010Q3

REPORT INFORMATION
  Report Type: 
  Country: None (occurrence: None)
  Receive Date: 20100810
  Receipt Date: 20100727
  Transmission Date: 20110219
  Serious: Yes (Hospitalization)
  Sender: FDA-Public Use
  Company Number: PHFR2010GB01255

PATIENT
  Sex: Male

DRUGS (3)
  1. CLOZARIL [Suspect]
     Indication: PARKINSON'S DISEASE
     Dosage: UNK
     Route: 048
     Dates: start: 20091012
  2. CLOZARIL [Suspect]
     Dosage: 12.5 MG/DAY
     Route: 048
     Dates: start: 20091113, end: 20100704
  3. CLOZARIL [Suspect]
     Dosage: 12.5 MG/DAY
     Route: 048
     Dates: start: 20100707

REACTIONS (2)
  - DRUG DOSE OMISSION [None]
  - FALL [None]
